FAERS Safety Report 5096059-1 (Version None)
Quarter: 2006Q3

REPORT INFORMATION
  Report Type: 
  Country: None (occurrence: None)
  Receive Date: 20060905
  Receipt Date: 20060613
  Transmission Date: 20061208
  Serious: Yes (Hospitalization)
  Sender: FDA-Public Use
  Company Number: 2006SE03327

PATIENT
  Age: 27966 Day
  Sex: Male

DRUGS (8)
  1. BLOPRESS TABLETS 4 [Suspect]
     Indication: HYPERTENSION
     Route: 048
     Dates: start: 20060210, end: 20060519
  2. PROCYLIN [Suspect]
     Route: 048
     Dates: start: 20060210, end: 20060410
  3. PLETAL [Concomitant]
     Route: 048
     Dates: start: 20060210
  4. OMEPRAZOLE [Concomitant]
     Route: 048
     Dates: start: 20060210
  5. PURSENNID [Concomitant]
     Route: 048
     Dates: start: 20060210
  6. MAGNESIUM OXIDE [Concomitant]
     Route: 048
     Dates: start: 20060210
  7. LOXONIN [Concomitant]
     Route: 048
     Dates: start: 20060210
  8. VASOLAN [Concomitant]
     Route: 048
     Dates: start: 20060210

REACTIONS (4)
  - APHAGIA [None]
  - DYSPNOEA [None]
  - LARYNGEAL OEDEMA [None]
  - LYMPHOCYTE STIMULATION TEST POSITIVE [None]
